FAERS Safety Report 23073921 (Version 2)
Quarter: 2023Q4

REPORT INFORMATION
  Report Type: Report from Study
  Country: US (occurrence: US)
  Receive Date: 20231017
  Receipt Date: 20231020
  Transmission Date: 20240109
  Serious: Yes (Other)
  Sender: FDA-Public Use
  Company Number: US-BAYER-2023A142281

PATIENT
  Age: 44 Year
  Sex: Female

DRUGS (1)
  1. BETASERON [Suspect]
     Active Substance: INTERFERON BETA-1B
     Indication: Multiple sclerosis
     Dosage: UNK

REACTIONS (7)
  - Multiple sclerosis relapse [None]
  - Pain [None]
  - Night sweats [None]
  - Middle insomnia [None]
  - Tremor [None]
  - Chills [None]
  - Product dose omission issue [Not Recovered/Not Resolved]
